FAERS Safety Report 24768936 (Version 1)
Quarter: 2024Q4

REPORT INFORMATION
  Report Type: Spontaneous
  Country: US (occurrence: US)
  Receive Date: 20241224
  Receipt Date: 20241224
  Transmission Date: 20250115
  Serious: Yes (Death)
  Sender: ROCHE
  Company Number: US-ROCHE-10000163864

PATIENT

DRUGS (1)
  1. ITOVEBI [Suspect]
     Active Substance: INAVOLISIB
     Indication: Product used for unknown indication
     Route: 065

REACTIONS (1)
  - Hyperglycaemia [Fatal]
